FAERS Safety Report 5473185-6 (Version None)
Quarter: 2007Q3

REPORT INFORMATION
  Report Type: 
  Country: None (occurrence: None)
  Receive Date: 20070927
  Receipt Date: 20070920
  Transmission Date: 20080115
  Serious: Yes (Death)
  Sender: FDA-Public Use
  Company Number: 2007-04308

PATIENT
  Age: 11 Year
  Sex: Male

DRUGS (5)
  1. ETOPOSIDE [Suspect]
     Indication: EWING'S SARCOMA
  2. CYCLOPHOSPHAMIDE [Suspect]
     Indication: EWING'S SARCOMA
  3. ADRIAMYCIN PFS [Suspect]
     Indication: EWING'S SARCOMA
  4. IFOSFAMIDE [Suspect]
     Indication: EWING'S SARCOMA
  5. VINCRISTINE [Suspect]
     Indication: EWING'S SARCOMA

REACTIONS (1)
  - GASTROINTESTINAL HAEMORRHAGE [None]
